FAERS Safety Report 4432001-1 (Version None)
Quarter: 2004Q3

REPORT INFORMATION
  Report Type: 
  Country: None (occurrence: None)
  Receive Date: 20040819
  Receipt Date: 20040804
  Transmission Date: 20050211
  Serious: Yes (Hospitalization)
  Sender: FDA-Public Use
  Company Number: 04P-028-0268729-00

PATIENT
  Age: 51 Year
  Weight: 65.5 kg

DRUGS (6)
  1. MIVACRON [Suspect]
     Indication: SURGERY
     Dosage: 20 MG, ONCE, INTRAVENOUS
     Route: 042
     Dates: start: 20040722
  2. ALENDRONATE SODIUM [Concomitant]
  3. PROPOFOL [Concomitant]
  4. REMIFENTANIL [Concomitant]
  5. LIDOCAINE [Concomitant]
  6. MORPHINE [Concomitant]

REACTIONS (2)
  - MEDICATION ERROR [None]
  - PSEUDOCHOLINESTERASE DEFICIENCY [None]
